FAERS Safety Report 4792212-2 (Version None)
Quarter: 2005Q4

REPORT INFORMATION
  Report Type: 
  Country: None (occurrence: None)
  Receive Date: 20051007
  Receipt Date: 20050929
  Transmission Date: 20060501
  Serious: Yes (Hospitalization, Disabling)
  Sender: FDA-Public Use
  Company Number: US-MERCK-0510USA00670

PATIENT
  Age: 63 Year
  Sex: Male
  Weight: 98 kg

DRUGS (2)
  1. VIOXX [Suspect]
     Route: 048
     Dates: start: 20030101, end: 20030301
  2. HYDRODIURIL [Concomitant]
     Route: 048

REACTIONS (2)
  - MYOCARDIAL INFARCTION [None]
  - PRESCRIBED OVERDOSE [None]
